FAERS Safety Report 21371435 (Version 1)
Quarter: 2022Q3

REPORT INFORMATION
  Report Type: Spontaneous
  Country: IN (occurrence: IN)
  Receive Date: 20220923
  Receipt Date: 20220923
  Transmission Date: 20221027
  Serious: Yes (Other)
  Sender: FDA-Public Use
  Company Number: IN-FreseniusKabi-FK202213001

PATIENT
  Age: 55 Year
  Sex: Female

DRUGS (6)
  1. CARBOPLATIN [Suspect]
     Active Substance: CARBOPLATIN
     Indication: Ovarian cancer
     Dosage: FIRST CYCLE
  2. CARBOPLATIN [Suspect]
     Active Substance: CARBOPLATIN
     Dosage: SECOND CYCLE
  3. CARBOPLATIN [Suspect]
     Active Substance: CARBOPLATIN
     Dosage: 4 CYCLES WERE GIVEN
  4. PACLITAXEL [Suspect]
     Active Substance: PACLITAXEL
     Indication: Ovarian cancer
     Dosage: FIRST CYCLE
  5. PACLITAXEL [Suspect]
     Active Substance: PACLITAXEL
     Dosage: SECOND CYCLE
  6. PACLITAXEL [Suspect]
     Active Substance: PACLITAXEL
     Dosage: 4 CYCLES WERE GIVEN

REACTIONS (1)
  - Vaginal fistula [Unknown]
